FAERS Safety Report 7452950-X (Version None)
Quarter: 2011Q2

REPORT INFORMATION
  Report Type: 
  Country: None (occurrence: None)
  Receive Date: 20110502
  Receipt Date: 20110422
  Transmission Date: 20111010
  Serious: Yes (Life-Threatening, Hospitalization)
  Sender: FDA-Public Use
  Company Number: US-BAXTER-2011BH008861

PATIENT
  Age: 70 Year
  Sex: Female
  Weight: 121 kg

DRUGS (6)
  1. ASPIRIN [Concomitant]
     Indication: CHEST PAIN
     Route: 048
     Dates: start: 20110402
  2. NITROGLYCERIN IN DEXTROSE 5% [Suspect]
     Indication: CHEST PAIN
     Route: 041
     Dates: start: 20110402, end: 20110403
  3. NITROGLYCERIN IN DEXTROSE 5% [Suspect]
     Indication: HYPERTENSION
     Route: 041
     Dates: start: 20110402, end: 20110403
  4. NITROGLYCERIN [Concomitant]
     Indication: CHEST PAIN
     Route: 060
     Dates: start: 20110402
  5. LASIX [Concomitant]
     Indication: DYSPNOEA
     Route: 042
     Dates: start: 20110402
  6. CARDIZEM [Concomitant]
     Indication: BLOOD PRESSURE INCREASED
     Route: 042
     Dates: start: 20110402

REACTIONS (1)
  - DRUG INEFFECTIVE [None]
